FAERS Safety Report 6165379-1 (Version None)
Quarter: 2009Q2

REPORT INFORMATION
  Report Type: 
  Country: None (occurrence: None)
  Receive Date: 20090423
  Receipt Date: 20090415
  Transmission Date: 20091009
  Serious: Yes (Hospitalization)
  Sender: FDA-Public Use
  Company Number: FR-ABBOTT-09P-056-0565613-00

PATIENT
  Age: 80 Year
  Sex: Female

DRUGS (1)
  1. DEPAKENE [Suspect]
     Indication: STATUS EPILEPTICUS
     Dates: start: 20090101

REACTIONS (3)
  - DIABETES INSIPIDUS [None]
  - HYPERNATRAEMIA [None]
  - URINE OSMOLARITY DECREASED [None]
